FAERS Safety Report 5476277-0 (Version None)
Quarter: 2007Q4

REPORT INFORMATION
  Report Type: 
  Country: None (occurrence: None)
  Receive Date: 20071003
  Receipt Date: 20070921
  Transmission Date: 20080405
  Serious: Yes (Other)
  Sender: FDA-Public Use
  Company Number: US-PFIZER INC-2007079004

PATIENT
  Sex: Female

DRUGS (2)
  1. CELEBREX [Suspect]
     Indication: OSTEOARTHRITIS
     Dosage: DAILY DOSE:200MG
     Route: 048
     Dates: start: 20030801, end: 20040311
  2. BEXTRA [Suspect]
     Dosage: DAILY DOSE:10MG
     Route: 048

REACTIONS (1)
  - CEREBROVASCULAR ACCIDENT [None]
